FAERS Safety Report 6832563-0 (Version None)
Quarter: 2010Q3

REPORT INFORMATION
  Report Type: 
  Country: None (occurrence: None)
  Receive Date: 20100712
  Receipt Date: 20070315
  Transmission Date: 20110219
  Serious: No
  Sender: FDA-Public Use
  Company Number: US-PFIZER INC-2007021099

PATIENT
  Sex: Female
  Weight: 50.35 kg

DRUGS (4)
  1. CHANTIX [Suspect]
     Indication: SMOKING CESSATION THERAPY
     Dosage: 2 EVERY NA DAYS
     Dates: start: 20070301
  2. ACYCLOVIR [Concomitant]
  3. SLEEP AID [Concomitant]
  4. ANTIDEPRESSANTS [Concomitant]

REACTIONS (4)
  - FATIGUE [None]
  - INCORRECT DOSE ADMINISTERED [None]
  - POOR QUALITY SLEEP [None]
  - SOMNOLENCE [None]
